FAERS Safety Report 6290570 (Version 2)
Quarter: 2013Q2

REPORT INFORMATION
  Report Type: Spontaneous
  Country: US (occurrence: None)
  Receive Date: 20070402
  Receipt Date: 20130425
  Transmission Date: 20140414
  Serious: Yes (Other)
  Sender: FDA-Public Use
  Company Number: 2007US-06570

PATIENT
  Age: 33 Year
  Sex: Female
  Weight: 59 kg

DRUGS (6)
  1. FENTANYL [Suspect]
     Indication: ARTHRALGIA
     Dosage: 25 MCG/HR, FOR 3 DAYS, TRANSDERMAL
     Route: 062
  2. FENTANYL [Suspect]
     Indication: ANALGESIC THERAPY
     Dosage: 25 MCG/HR, FOR 3 DAYS, TRANSDERMAL
     Route: 062
  3. MORPHINE [Suspect]
     Indication: ANALGESIC THERAPY
     Dosage: 3-5 MG PERIOPERATIVELY, INTRAVENOUS
     Route: 042
  4. MORPHINE [Suspect]
     Indication: ANALGESIC THERAPY
     Dosage: 3-5 MG PERIOPERATIVELY, INTRAVENOUS
     Route: 042
  5. HYDROMORPHONE (HYDROMORPHONE) [Suspect]
     Indication: ANALGESIC THERAPY
     Dosage: 1.25MG PERIOPERATIVELY, INTRAVENOUS
     Route: 042
  6. HYDROMORPHONE (HYDROMORPHONE) [Suspect]
     Indication: ANALGESIC THERAPY
     Dosage: 1.25MG PERIOPERATIVELY, INTRAVENOUS
     Route: 042

REACTIONS (1)
  - Hallucinations, mixed [None]
